FAERS Safety Report 9037018 (Version 1)
Quarter: 2013Q1

REPORT INFORMATION
  Report Type: Spontaneous
  Country: US (occurrence: US)
  Receive Date: 20130129
  Receipt Date: 20130129
  Transmission Date: 20140127
  Serious: No
  Sender: FDA-Public Use
  Company Number: US-009507513-1301USA010576

PATIENT
  Sex: Female

DRUGS (18)
  1. VIOXX [Suspect]
  2. ATORVASTATIN CALCIUM [Concomitant]
     Dosage: UNK
     Dates: start: 20120316
  3. CADUET [Concomitant]
     Indication: BLOOD PRESSURE INCREASED
  4. CADUET [Concomitant]
     Indication: BLOOD CHOLESTEROL INCREASED
  5. LIPITOR [Concomitant]
     Dosage: UNK, QD
     Dates: start: 20120410
  6. ALENDRONATE SODIUM / CHOLCALCIFEROL TABLETS [Concomitant]
  7. FOLBIC [Concomitant]
  8. PROGESTERONE [Concomitant]
     Dosage: NATURAL HORMONE; EVERY NIGHT
  9. HYDROQUINONE [Concomitant]
     Dosage: FACE CREAM
  10. PHILLIPS LAXATIVE CAPLETS [Concomitant]
     Dosage: TWO EVERY NIGHT
  11. OMEGA-3 MARINE TRIGLYCERIDES [Concomitant]
  12. CALCIUM (UNSPECIFIED) [Concomitant]
  13. ERGOCALCIFEROL [Concomitant]
  14. AVAPRO [Concomitant]
     Indication: BLOOD PRESSURE INCREASED
  15. LOTREL [Concomitant]
  16. CIPRO [Concomitant]
  17. FLAGYL [Concomitant]
  18. MELOXICAM [Concomitant]
     Indication: TENDONITIS

REACTIONS (24)
  - Heart rate irregular [Unknown]
  - Myalgia [Recovered/Resolved]
  - Foot fracture [Unknown]
  - Muscle spasms [Recovered/Resolved]
  - Typical aura without headache [Recovered/Resolved]
  - Limb discomfort [Recovered/Resolved]
  - Dizziness [Recovered/Resolved]
  - Poor quality sleep [Recovered/Resolved]
  - Musculoskeletal stiffness [Unknown]
  - Myalgia [Unknown]
  - Melaena [Unknown]
  - Paraesthesia [Unknown]
  - Chromaturia [Unknown]
  - Heart rate irregular [Unknown]
  - Insomnia [Unknown]
  - Decreased appetite [Unknown]
  - Headache [Unknown]
  - Burning sensation [Unknown]
  - Back pain [Unknown]
  - Vulvovaginal discomfort [Unknown]
  - Visual impairment [Unknown]
  - Chest pain [Unknown]
  - Balance disorder [Unknown]
  - Memory impairment [Unknown]
